FAERS Safety Report 7569870-2 (Version None)
Quarter: 2011Q2

REPORT INFORMATION
  Report Type: 
  Country: None (occurrence: None)
  Receive Date: 20110622
  Receipt Date: 20110622
  Transmission Date: 20111010
  Serious: No
  Sender: FDA-Public Use
  Company Number: None

PATIENT
  Sex: Female

DRUGS (1)
  1. ENBREL [Suspect]
     Indication: RHEUMATOID ARTHRITIS
     Dosage: 25MG WEEKLY SUB-Q
     Route: 058
     Dates: start: 20101123, end: 20110430

REACTIONS (4)
  - MALAISE [None]
  - WEIGHT INCREASED [None]
  - OEDEMA PERIPHERAL [None]
  - DEPRESSION [None]
